FAERS Safety Report 5882613-3 (Version None)
Quarter: 2008Q3

REPORT INFORMATION
  Report Type: 
  Country: None (occurrence: None)
  Receive Date: 20080913
  Receipt Date: 20080808
  Transmission Date: 20090109
  Serious: No
  Sender: FDA-Public Use
  Company Number: US-ABBOTT-08P-163-0469857-00

PATIENT
  Sex: Female
  Weight: 43.13 kg

DRUGS (6)
  1. HUMIRA [Suspect]
     Indication: CROHN'S DISEASE
     Dosage: CONSUMER DISCARDED PEN, DID NOT HAVE ANOTHER
     Route: 058
     Dates: start: 20080626
  2. HUMIRA [Suspect]
     Route: 058
  3. HUMIRA [Suspect]
     Route: 058
  4. IBUPROFEN [Concomitant]
     Indication: PAIN
     Route: 048
     Dates: start: 20060101
  5. UNSPECIFIED BIRTH CONTROL PILL [Concomitant]
     Indication: CONTRACEPTION
     Dosage: DOSE NOT KNOWN
     Route: 048
     Dates: start: 20080601
  6. MODAFINIL [Concomitant]
     Indication: INSOMNIA
     Route: 048
     Dates: start: 20060101

REACTIONS (2)
  - ACCIDENTAL EXPOSURE [None]
  - INJECTION SITE PAIN [None]
